FAERS Safety Report 25312576 (Version 2)
Quarter: 2025Q4

REPORT INFORMATION
  Report Type: Spontaneous
  Country: EU (occurrence: EU)
  Receive Date: 20250514
  Receipt Date: 20251231
  Transmission Date: 20260118
  Serious: Yes (Other)
  Sender: ARGENX BVBA
  Company Number: EU-ARGENX-2025-ARGX-DE005862

PATIENT

DRUGS (6)
  1. PREDNISONE [Suspect]
     Active Substance: PREDNISONE
     Indication: Pemphigus
     Dosage: 20 MG, DAILY
     Route: 048
  2. PREDNISONE [Suspect]
     Active Substance: PREDNISONE
     Dosage: 40 MG, DAILY
     Route: 048
  3. EFGARTIGIMOD ALFA [Suspect]
     Active Substance: EFGARTIGIMOD ALFA
     Indication: Pemphigus
     Dosage: 10 MG/KG, 1/WEEK
     Route: 042
  4. EFGARTIGIMOD ALFA [Suspect]
     Active Substance: EFGARTIGIMOD ALFA
     Dosage: 10 MG/KG, Q2WEEKS, EVERY OTHER WEEK FOR 8 WEEKS
     Route: 042
  5. EFGARTIGIMOD ALFA [Suspect]
     Active Substance: EFGARTIGIMOD ALFA
     Dosage: 10 MG/KG
     Route: 042
  6. EFGARTIGIMOD ALFA [Suspect]
     Active Substance: EFGARTIGIMOD ALFA
     Dosage: 25 MG/KG, 1/WEEK, COHORT 4
     Route: 042

REACTIONS (27)
  - Pemphigus [Unknown]
  - Blood albumin increased [Unknown]
  - Anaemia [Unknown]
  - Diarrhoea [Unknown]
  - Alanine aminotransferase increased [Unknown]
  - Blood creatine phosphokinase increased [Unknown]
  - Dry skin [Unknown]
  - Renal pain [Unknown]
  - Tibia fracture [Unknown]
  - Cough [Unknown]
  - Fatigue [Unknown]
  - Dizziness [Unknown]
  - Vomiting [Unknown]
  - Abdominal pain [Unknown]
  - Syncope [Unknown]
  - Pneumonia [Unknown]
  - Influenza like illness [Unknown]
  - Urinary tract infection [Unknown]
  - Gastroenteritis [Unknown]
  - Headache [Unknown]
  - Nasopharyngitis [Unknown]
  - Tooth infection [Unknown]
  - Bronchitis [Unknown]
  - Respiratory tract infection [Unknown]
  - Rhinitis [Unknown]
  - Impetigo [Unknown]
  - Off label use [Unknown]
